FAERS Safety Report 12984732 (Version 1)
Quarter: 2016Q4

REPORT INFORMATION
  Report Type: Report from Study
  Country: US (occurrence: US)
  Receive Date: 20161129
  Receipt Date: 20161129
  Transmission Date: 20170207
  Serious: Yes (Hospitalization)
  Sender: FDA-Public Use
  Company Number: US-ACTELION-A-US2016-143865

PATIENT
  Age: 73 Year
  Sex: Male
  Weight: 60.32 kg

DRUGS (3)
  1. UPTRAVI [Suspect]
     Active Substance: SELEXIPAG
     Dosage: 1400 MCG, BID
     Route: 048
  2. UPTRAVI [Suspect]
     Active Substance: SELEXIPAG
     Indication: PULMONARY ARTERIAL HYPERTENSION
     Dosage: 1000 MCG, BID
     Route: 048
  3. UPTRAVI [Suspect]
     Active Substance: SELEXIPAG
     Dosage: 1400 MCG, UNK
     Route: 048
     Dates: start: 20160902

REACTIONS (8)
  - Dizziness [Unknown]
  - Musculoskeletal pain [Unknown]
  - Malaise [Unknown]
  - Dyspnoea [Unknown]
  - Bone pain [Unknown]
  - Pulmonary oedema [Unknown]
  - Asthenia [Unknown]
  - Pneumonia [Unknown]
